FAERS Safety Report 9114667 (Version 1)
Quarter: 2013Q1

REPORT INFORMATION
  Report Type: Report from Study
  Country: US (occurrence: US)
  Receive Date: 20130129
  Receipt Date: 20130129
  Transmission Date: 20140127
  Serious: No
  Sender: FDA-Public Use
  Company Number: US-ABBOTT-12P-163-0920101-00

PATIENT
  Age: 36 Year
  Sex: Female

DRUGS (12)
  1. HUMIRA 40 MG/0.8 ML PEN [Suspect]
     Indication: ANKYLOSING SPONDYLITIS
     Route: 050
     Dates: start: 201203
  2. BACLOFEN [Concomitant]
     Indication: SPONDYLITIS
  3. BACLOFEN [Concomitant]
     Indication: NYSTAGMUS
  4. DICLOFENAC [Concomitant]
     Indication: SPONDYLITIS
  5. TRAMADOL [Concomitant]
     Indication: PAIN
  6. KLONOPIN [Concomitant]
     Indication: ANXIETY
  7. RESTASIS [Concomitant]
     Indication: DRY EYE
  8. RESTASIS [Concomitant]
     Indication: EYE INFLAMMATION
  9. PERCOCET [Concomitant]
     Indication: PAIN
  10. SYSTANE BALANCE [Concomitant]
     Indication: DRY EYE
     Route: 047
  11. MULTIVIT [Concomitant]
     Indication: PRODUCT USED FOR UNKNOWN INDICATION
     Dosage: DAILY
  12. VALIUM [Concomitant]
     Indication: ANXIETY

REACTIONS (16)
  - Malaise [Unknown]
  - Nausea [Unknown]
  - Vomiting [Unknown]
  - Nausea [Unknown]
  - Vomiting [Unknown]
  - Nausea [Unknown]
  - Vomiting [Unknown]
  - Drug ineffective [Unknown]
  - Ankylosing spondylitis [Not Recovered/Not Resolved]
  - Nausea [Unknown]
  - Diarrhoea [Unknown]
  - Abdominal pain [Unknown]
  - Nausea [Unknown]
  - Diarrhoea [Unknown]
  - Malaise [Unknown]
  - Back pain [Unknown]
